FAERS Safety Report 14263330 (Version 2)
Quarter: 2018Q1

REPORT INFORMATION
  Report Type: Spontaneous
  Country: HU (occurrence: HU)
  Receive Date: 20171208
  Receipt Date: 20180111
  Transmission Date: 20180508
  Serious: Yes (Hospitalization, Other)
  Sender: FDA-Public Use
  Company Number: HU-AUROBINDO-AUR-APL-2017-43984

PATIENT
  Age: 35 Year
  Sex: Female

DRUGS (13)
  1. AMOXICILLIN+CLAVULANIC ACID AUROBINDO [Suspect]
     Active Substance: AMOXICILLIN\CLAVULANIC ACID
     Indication: PROPHYLAXIS
     Dosage: 2 G, UNK
     Route: 065
  2. CONCOR [Concomitant]
     Active Substance: BISOPROLOL FUMARATE
     Indication: PRODUCT USED FOR UNKNOWN INDICATION
     Dosage: UNK ()
  3. CATAFLAM                           /00372302/ [Suspect]
     Active Substance: DICLOFENAC SODIUM
     Indication: PAIN
     Route: 065
  4. ASPIRIN                            /00002701/ [Concomitant]
     Active Substance: ASPIRIN
     Indication: PRODUCT USED FOR UNKNOWN INDICATION
     Dosage: UNK ()
  5. PANTOPRAZOLE [Suspect]
     Active Substance: PANTOPRAZOLE
     Dosage: 20 MG, BID
  6. PANTOPRAZOLE [Suspect]
     Active Substance: PANTOPRAZOLE
     Dosage: ()
  7. CATAFLAM                           /00372302/ [Suspect]
     Active Substance: DICLOFENAC SODIUM
     Dosage: UNK ()
  8. MEDROL [Concomitant]
     Active Substance: METHYLPREDNISOLONE
     Indication: PRODUCT USED FOR UNKNOWN INDICATION
     Dosage: UNK ()
  9. CHLORHEXIDINE [Concomitant]
     Active Substance: CHLORHEXIDINE
     Indication: PRODUCT USED FOR UNKNOWN INDICATION
     Dosage: UNK ()
  10. SYNCUMAR [Concomitant]
     Active Substance: ACENOCOUMAROL
     Indication: PRODUCT USED FOR UNKNOWN INDICATION
     Dosage: UNK ()
  11. PANTOPRAZOLE [Suspect]
     Active Substance: PANTOPRAZOLE
     Indication: PRODUCT USED FOR UNKNOWN INDICATION
     Dosage: 20 MG, TWO TIMES A DAY
     Route: 065
  12. NOCLAUD [Concomitant]
     Active Substance: CILOSTAZOL
     Indication: PRODUCT USED FOR UNKNOWN INDICATION
     Dosage: UNK ()
  13. AUGMENTINE                         /00756801/ [Concomitant]
     Indication: PRODUCT USED FOR UNKNOWN INDICATION

REACTIONS (20)
  - Lymphadenopathy [Unknown]
  - Insomnia [Unknown]
  - Acute leukaemia [Unknown]
  - Paraesthesia [Unknown]
  - Nasal congestion [Unknown]
  - Gingival swelling [Unknown]
  - Headache [Unknown]
  - Pneumonia [Unknown]
  - Parotid gland enlargement [Unknown]
  - Pain [Unknown]
  - Sinusitis [Unknown]
  - Infectious mononucleosis [Recovering/Resolving]
  - Purulent discharge [Unknown]
  - Pain in extremity [Unknown]
  - Muscular weakness [Unknown]
  - Pyogenic granuloma [Unknown]
  - Granulomatosis with polyangiitis [Recovering/Resolving]
  - Ear infection [Unknown]
  - Pyrexia [Unknown]
  - Condition aggravated [Recovering/Resolving]
